FAERS Safety Report 6847671-8 (Version None)
Quarter: 2010Q3

REPORT INFORMATION
  Report Type: 
  Country: None (occurrence: None)
  Receive Date: 20100716
  Receipt Date: 20100702
  Transmission Date: 20110219
  Serious: Yes (Death)
  Sender: FDA-Public Use
  Company Number: IL-RANBAXY-2010RR-34796

PATIENT
  Age: 28 Year
  Sex: Male

DRUGS (9)
  1. DIAZEPAM [Suspect]
     Dosage: UNK
     Dates: start: 20090730
  2. DIHYDROCODEINE BITARTRATE INJ [Suspect]
     Indication: TOOTHACHE
  3. AMITRIPTYLINE HYDROCHLORIDE [Suspect]
     Dosage: UNK
     Dates: start: 20090730
  4. NAPROXEN [Suspect]
  5. ZOPICLONE [Suspect]
     Dosage: UNK
     Dates: start: 20090730
  6. NORDIAZEPAM [Suspect]
  7. OXYCONTIN [Suspect]
     Indication: PAIN IN EXTREMITY
     Dosage: UNK
     Dates: start: 20090730
  8. NORTRIPTYLINE HYDROCHLORIDE [Suspect]
  9. OXYCODONE HCL [Suspect]
     Indication: ACCIDENTAL OVERDOSE
     Dosage: UNK
     Dates: start: 20090730

REACTIONS (2)
  - ACCIDENTAL OVERDOSE [None]
  - RESPIRATORY DEPRESSION [None]
